FAERS Safety Report 12857317 (Version 1)
Quarter: 2016Q4

REPORT INFORMATION
  Report Type: Spontaneous
  Country: FR (occurrence: FR)
  Receive Date: 20161018
  Receipt Date: 20161018
  Transmission Date: 20170207
  Serious: Yes (Life-Threatening, Other)
  Sender: FDA-Public Use
  Company Number: FR-GLAXOSMITHKLINE-FR2016GSK147004

PATIENT
  Age: 67 Year
  Sex: Female

DRUGS (5)
  1. ULTIVA [Suspect]
     Active Substance: REMIFENTANIL HYDROCHLORIDE
     Indication: INDUCTION OF ANAESTHESIA
     Dosage: 1 DF, SINGLE
     Route: 042
     Dates: start: 20150727
  2. ZINNAT [Suspect]
     Active Substance: CEFUROXIME AXETIL
     Indication: INDUCTION OF ANAESTHESIA
     Dosage: 1 DF, SINGLE
     Route: 042
     Dates: start: 20150727
  3. NIMBEX [Suspect]
     Active Substance: CISATRACURIUM BESYLATE
     Indication: INDUCTION OF ANAESTHESIA
     Dosage: 1 DF, SINGLE
     Route: 042
     Dates: start: 20150727
  4. BETADINE [Suspect]
     Active Substance: POVIDONE-IODINE
     Indication: PRODUCT USED FOR UNKNOWN INDICATION
     Dosage: 1 DF, SINGLE
     Route: 061
     Dates: start: 20150727
  5. PROPOFOL. [Suspect]
     Active Substance: PROPOFOL
     Indication: INDUCTION OF ANAESTHESIA
     Dosage: 1 DF, SINGLE
     Route: 042
     Dates: start: 20150727

REACTIONS (1)
  - Anaphylactic shock [Recovered/Resolved]

NARRATIVE: CASE EVENT DATE: 20150727
